FAERS Safety Report 9852676 (Version 1)
Quarter: 2014Q1

REPORT INFORMATION
  Report Type: Spontaneous
  Country: ES (occurrence: None)
  Receive Date: 20140127
  Receipt Date: 20140127
  Transmission Date: 20141002
  Serious: Yes (Other)
  Sender: FDA-Public Use
  Company Number: 2013RR-76372

PATIENT
  Age: 66 Year
  Sex: Female

DRUGS (15)
  1. ATORVASTATIN (ATORVASTATIN) [Suspect]
     Indication: PRODUCT USED FOR UNKNOWN INDICATION
     Route: 048
     Dates: start: 2012
  2. SIMVASTATIN (SIMVASTATIN) [Suspect]
     Indication: PRODUCT USED FOR UNKNOWN INDICATION
     Route: 048
     Dates: start: 2012, end: 20130827
  3. CUBICIN (DAPTOMYCIN) [Suspect]
     Indication: DEVICE RELATED INFECTION
     Dates: start: 20130912, end: 20130924
  4. CUBICIN (DAPTOMYCIN) [Suspect]
     Indication: OFF LABEL USE
     Dates: start: 20130912, end: 20130924
  5. TRAMADOL (TRAMADOL) [Concomitant]
  6. FOLIC ACID (FOLIC ACID) [Concomitant]
  7. DICLOFENAC (DICLOFENAC) [Concomitant]
  8. PARACETAMOL (PARACETAMOL) [Concomitant]
  9. LORAZEPAM (LORAZEPAM) [Concomitant]
  10. DULOXETINE (DULOXETINE) (DULOXETINE) [Concomitant]
  11. AMERIDE (AMILORIDE HYDROCHLORIDE/HYDROCHLOROTHIAZIDE) [Concomitant]
  12. DORMODOR (FLURAZEPAM HYDROCHLORIDE) [Concomitant]
  13. NOLOTIL (METAMIZOLE MAGNESIUM) [Concomitant]
  14. TARDYFERON (FERROUS SULPHATE) [Concomitant]
  15. POLARAMINE (DEXCHLORPHENIRAMINE MALEATE) [Concomitant]

REACTIONS (2)
  - Myopathy [None]
  - Drug interaction [None]
